FAERS Safety Report 7896610-X (Version None)
Quarter: 2011Q4

REPORT INFORMATION
  Report Type: 
  Country: None (occurrence: None)
  Receive Date: 20111104
  Receipt Date: 20111104
  Transmission Date: 20120403
  Serious: Yes (Life-Threatening)
  Sender: FDA-Public Use
  Company Number: None

PATIENT
  Sex: Female
  Weight: 57.6068 kg

DRUGS (1)
  1. MELOXICAM SUB FOR MOBIC 7.5 MG TAB [Suspect]
     Indication: ARTHRALGIA
     Dates: start: 20111010, end: 20111015

REACTIONS (5)
  - SWOLLEN TONGUE [None]
  - BLADDER DISORDER [None]
  - LOCAL SWELLING [None]
  - PHARYNGEAL OEDEMA [None]
  - PAIN [None]
